FAERS Safety Report 24152703 (Version 1)
Quarter: 2024Q3

REPORT INFORMATION
  Report Type: Spontaneous
  Country: US (occurrence: US)
  Receive Date: 20240730
  Receipt Date: 20240730
  Transmission Date: 20241016
  Serious: No
  Sender: SANOFI AVENTIS
  Company Number: US-SA-SAC20240723001024

PATIENT
  Sex: Female

DRUGS (25)
  1. DUPIXENT [Suspect]
     Active Substance: DUPILUMAB
     Indication: Asthma
     Dosage: 300MG QOW
     Route: 058
  2. TRELEGY ELLIPTA [Concomitant]
     Active Substance: FLUTICASONE FUROATE\UMECLIDINIUM BROMIDE\VILANTEROL TRIFENATATE
  3. ALBUTEROL SULFATE [Concomitant]
     Active Substance: ALBUTEROL SULFATE
  4. AZELASTINE HYDROCHLORIDE [Concomitant]
     Active Substance: AZELASTINE HYDROCHLORIDE
  5. BACLOFEN [Concomitant]
     Active Substance: BACLOFEN
  6. CARISOPRODOL [Concomitant]
     Active Substance: CARISOPRODOL
  7. ESTRADIOL [Concomitant]
     Active Substance: ESTRADIOL
  8. FLUCONAZOLE [Concomitant]
     Active Substance: FLUCONAZOLE
  9. FUROSEMIDE [Concomitant]
     Active Substance: FUROSEMIDE
  10. HYDROCODONE [Concomitant]
     Active Substance: HYDROCODONE
  11. LIDOCAINE [Concomitant]
     Active Substance: LIDOCAINE
  12. LINZESS [Concomitant]
     Active Substance: LINACLOTIDE
  13. LOVASTATIN [Concomitant]
     Active Substance: LOVASTATIN
  14. NABUMETONE [Concomitant]
     Active Substance: NABUMETONE
  15. NOVOLOG [Concomitant]
     Active Substance: INSULIN ASPART
  16. OMEPRAZOLE [Concomitant]
     Active Substance: OMEPRAZOLE
  17. ONDANSETRON [Concomitant]
     Active Substance: ONDANSETRON
  18. PREDNISONE [Concomitant]
     Active Substance: PREDNISONE
  19. PREGABALIN [Concomitant]
     Active Substance: PREGABALIN
  20. PRIMIDONE [Concomitant]
     Active Substance: PRIMIDONE
  21. SERTRALINE HYDROCHLORIDE [Concomitant]
     Active Substance: SERTRALINE HYDROCHLORIDE
  22. TIZANIDINE HYDROCHLORIDE [Concomitant]
     Active Substance: TIZANIDINE HYDROCHLORIDE
  23. TOUJEO MAX [Concomitant]
     Active Substance: INSULIN GLARGINE
  24. VITAMIN D3 [Concomitant]
     Active Substance: CHOLECALCIFEROL
  25. TRIAMCINOLONE [Concomitant]
     Active Substance: TRIAMCINOLONE

REACTIONS (6)
  - Bronchitis [Not Recovered/Not Resolved]
  - Asthma [Unknown]
  - Dyspnoea [Not Recovered/Not Resolved]
  - Cough [Not Recovered/Not Resolved]
  - Loss of personal independence in daily activities [Not Recovered/Not Resolved]
  - Sleep disorder [Not Recovered/Not Resolved]

NARRATIVE: CASE EVENT DATE: 20240601
